FAERS Safety Report 5343897-3 (Version None)
Quarter: 2007Q2

REPORT INFORMATION
  Report Type: 
  Country: None (occurrence: None)
  Receive Date: 20070531
  Receipt Date: 20070531
  Transmission Date: 20071010
  Serious: Yes (Hospitalization)
  Sender: FDA-Public Use
  Company Number: None

PATIENT
  Sex: Male
  Weight: 54.4316 kg

DRUGS (17)
  1. OSY-774 (ERLOTINIBN) 150MG (OSI PHARMACEUTICALS) [Suspect]
     Indication: NON-SMALL CELL LUNG CANCER METASTATIC
     Dosage: 150MG/D PO; 175MG/D PO 200MG PO DAILY
     Route: 048
     Dates: start: 20070219, end: 20070320
  2. OSY-774 (ERLOTINIBN) 150MG (OSI PHARMACEUTICALS) [Suspect]
     Indication: NON-SMALL CELL LUNG CANCER METASTATIC
     Dosage: 150MG/D PO; 175MG/D PO 200MG PO DAILY
     Route: 048
     Dates: start: 20040321, end: 20070412
  3. OSY-774 (ERLOTINIBN) 150MG (OSI PHARMACEUTICALS) [Suspect]
     Indication: NON-SMALL CELL LUNG CANCER METASTATIC
     Dosage: 150MG/D PO; 175MG/D PO 200MG PO DAILY
     Route: 048
     Dates: start: 20070413, end: 20070510
  4. SPIRIVA [Concomitant]
  5. SINGULAIR [Concomitant]
  6. CLARITIN [Concomitant]
  7. OXYCONTIN [Concomitant]
  8. PERCOCET [Concomitant]
  9. ALBUTEROL [Concomitant]
  10. NASONEX [Concomitant]
  11. LACTULOSE [Concomitant]
  12. LEXAPRO [Concomitant]
  13. MEGACE SUSP [Concomitant]
  14. DILAUDID [Concomitant]
  15. ZOFRAN [Concomitant]
  16. FOLIC ACID [Concomitant]
  17. ACTIVAN [Concomitant]

REACTIONS (4)
  - ABDOMINAL PAIN [None]
  - DISEASE PROGRESSION [None]
  - NAUSEA [None]
  - VOMITING [None]
